FAERS Safety Report 24130643 (Version 1)
Quarter: 2024Q3

REPORT INFORMATION
  Report Type: Report from Study
  Country: PE (occurrence: None)
  Receive Date: 20240724
  Receipt Date: 20240724
  Transmission Date: 20241017
  Serious: Yes (Death, Other)
  Sender: ASTRAZENECA
  Company Number: 2024A165671

PATIENT
  Age: 23072 Day
  Sex: Female

DRUGS (1)
  1. TAGRISSO [Suspect]
     Active Substance: OSIMERTINIB
     Indication: Lung neoplasm malignant
     Route: 048
     Dates: start: 20240607, end: 202406

REACTIONS (3)
  - Hypersensitivity [Fatal]
  - Illness [Fatal]
  - Extra dose administered [Unknown]

NARRATIVE: CASE EVENT DATE: 20240701
